FAERS Safety Report 7963889-5 (Version None)
Quarter: 2011Q4

REPORT INFORMATION
  Report Type: 
  Country: None (occurrence: None)
  Receive Date: 20111206
  Receipt Date: 20111121
  Transmission Date: 20120403
  Serious: Yes (Other)
  Sender: FDA-Public Use
  Company Number: 1000025802

PATIENT
  Age: 70 Year
  Sex: Female
  Weight: 98 kg

DRUGS (3)
  1. ROFLUMILAST (ROFLUMILAST) (TABLETS) [Suspect]
     Indication: CHRONIC OBSTRUCTIVE PULMONARY DISEASE
     Dosage: 500 MCG (500 MCG, 1 IN 1 D),ORAL
  2. FORMATRIS (FORMOTEROL FUMARATE)(FORMOTEROL FUMARATE) [Concomitant]
  3. NOVOPULMON (BUDESONIDE) (BUDESONIDE) [Concomitant]

REACTIONS (3)
  - PALPITATIONS [None]
  - DYSPNOEA [None]
  - NAUSEA [None]
